FAERS Safety Report 8432792-9 (Version None)
Quarter: 2012Q2

REPORT INFORMATION
  Report Type: 
  Country: None (occurrence: None)
  Receive Date: 20120613
  Receipt Date: 20120609
  Transmission Date: 20120825
  Serious: No
  Sender: FDA-Public Use
  Company Number: US-PFIZER INC-2012138860

PATIENT
  Sex: Female
  Weight: 58.05 kg

DRUGS (7)
  1. SIMVASTATIN [Concomitant]
     Dosage: 20 MG, UNK
  2. ACETYLSALICYLIC ACID [Concomitant]
     Dosage: UNK
  3. POTASSIUM [Concomitant]
     Dosage: UNK
  4. POTASSIUM PENICILLIN G [Suspect]
     Dosage: UNK
  5. OMEGA-3 TRIGLYCERIDES [Concomitant]
     Dosage: UNK
  6. FUROSEMIDE [Concomitant]
     Dosage: 20 MG, UNK
  7. NADOLOL [Concomitant]
     Dosage: 20 MG, UNK

REACTIONS (1)
  - DRUG HYPERSENSITIVITY [None]
